FAERS Safety Report 9882537 (Version 1)
Quarter: 2014Q1

REPORT INFORMATION
  Report Type: Spontaneous
  Country: US (occurrence: US)
  Receive Date: 20140207
  Receipt Date: 20140207
  Transmission Date: 20141002
  Serious: Yes (Hospitalization)
  Sender: FDA-Public Use
  Company Number: PHHY2014US013816

PATIENT
  Age: 24 Year
  Sex: Female

DRUGS (6)
  1. CICLOSPORIN [Suspect]
     Indication: IMMUNOSUPPRESSION
     Dosage: 400 MG, DAILY
  2. CICLOSPORIN [Suspect]
     Dosage: 300 MG, UNK
  3. PREDNISONE [Suspect]
     Indication: IMMUNOSUPPRESSION
     Dosage: 15 MG, DAILY
  4. AZATHIOPRINE [Suspect]
     Indication: IMMUNOSUPPRESSION
     Dosage: 50 MG, UNK
  5. METHYLPREDNISOLONE [Suspect]
     Dosage: 1 G, UNK
     Route: 042
  6. ATENOLOL [Suspect]
     Indication: HYPERTENSION

REACTIONS (12)
  - Liver transplant rejection [Unknown]
  - Condition aggravated [Unknown]
  - Blood creatinine increased [Unknown]
  - Hepatic enzyme increased [Unknown]
  - Complications of transplanted liver [Unknown]
  - Hypertension [Unknown]
  - Pyrexia [Unknown]
  - Immunosuppressant drug level increased [Unknown]
  - Decreased appetite [Unknown]
  - Weight decreased [Recovered/Resolved]
  - Premature labour [Unknown]
  - Exposure during pregnancy [Unknown]
